FAERS Safety Report 7801681-2 (Version None)
Quarter: 2011Q4

REPORT INFORMATION
  Report Type: 
  Country: None (occurrence: None)
  Receive Date: 20111007
  Receipt Date: 20110930
  Transmission Date: 20120403
  Serious: Yes (Hospitalization)
  Sender: FDA-Public Use
  Company Number: US-B.I. PHARMACEUTICALS,INC./RIDGEFIELD-2011-BP-20302BP

PATIENT
  Age: 69 Year
  Sex: Female
  Weight: 97.52 kg

DRUGS (5)
  1. LISINOPRIL [Concomitant]
     Dosage: 20 MG
     Dates: start: 20110307, end: 20110817
  2. LASIX [Concomitant]
     Dosage: 40 MG
     Dates: start: 20110307, end: 20110817
  3. AMIODARONE HCL [Concomitant]
     Dosage: 20 MG
     Dates: start: 20110307, end: 20110817
  4. PRADAXA [Suspect]
     Indication: ATRIAL FIBRILLATION
     Dosage: 300 MG
     Dates: start: 20110614, end: 20110822
  5. DIGOXIN [Concomitant]
     Dosage: 0.125 MG
     Dates: start: 20110307, end: 20110817

REACTIONS (2)
  - INTERNATIONAL NORMALISED RATIO INCREASED [None]
  - RENAL FAILURE [None]
